FAERS Safety Report 6727161-3 (Version None)
Quarter: 2010Q2

REPORT INFORMATION
  Report Type: 
  Country: None (occurrence: None)
  Receive Date: 20100512
  Receipt Date: 20100129
  Transmission Date: 20101027
  Serious: No
  Sender: FDA-Public Use
  Company Number: 1000011573

PATIENT
  Age: 46 Year
  Sex: Male

DRUGS (3)
  1. SAVELLA [Suspect]
     Indication: NEUROPATHY PERIPHERAL
     Dosage: 12.5 MG (12.5 MG, 1 IN 1 D), ORAL
     Route: 048
     Dates: start: 20100127
  2. NORCO [Concomitant]
  3. LUNESTA [Concomitant]

REACTIONS (2)
  - FEELING JITTERY [None]
  - TREMOR [None]
